FAERS Safety Report 11333476 (Version 1)
Quarter: 2015Q3

REPORT INFORMATION
  Report Type: Spontaneous
  Country: US (occurrence: US)
  Receive Date: 20150803
  Receipt Date: 20150803
  Transmission Date: 20151125
  Serious: Yes (Other)
  Sender: FDA-Public Use
  Company Number: US-ELI_LILLY_AND_COMPANY-US200701003721

PATIENT
  Sex: Male
  Weight: 136.5 kg

DRUGS (1)
  1. ZYPREXA [Suspect]
     Active Substance: OLANZAPINE
     Dosage: 10 MG, EACH EVENING
     Route: 048
     Dates: start: 200112

REACTIONS (5)
  - Nail discomfort [Unknown]
  - Oedema peripheral [Unknown]
  - Onychomadesis [Unknown]
  - Blood glucose increased [Unknown]
  - Weight increased [Not Recovered/Not Resolved]

NARRATIVE: CASE EVENT DATE: 2004
